FAERS Safety Report 5034593-0 (Version None)
Quarter: 2006Q2

REPORT INFORMATION
  Report Type: 
  Country: None (occurrence: None)
  Receive Date: 20060626
  Receipt Date: 20060616
  Transmission Date: 20061013
  Serious: Yes (Hospitalization)
  Sender: FDA-Public Use
  Company Number: US-ABBOTT-06P-163-0336240-00

PATIENT
  Sex: Female

DRUGS (2)
  1. HUMIRA [Suspect]
     Indication: CROHN'S DISEASE
     Route: 058
     Dates: end: 20060406
  2. HUMIRA [Suspect]
     Route: 058
     Dates: start: 20051101

REACTIONS (3)
  - DEMYELINATION [None]
  - HEADACHE [None]
  - HYPOAESTHESIA [None]
